FAERS Safety Report 4543884-9 (Version None)
Quarter: 2004Q4

REPORT INFORMATION
  Report Type: 
  Country: None (occurrence: None)
  Receive Date: 20041229
  Receipt Date: 20041229
  Transmission Date: 20050328
  Serious: Yes (Other)
  Sender: FDA-Public Use
  Company Number: None

PATIENT
  Age: 49 Year
  Sex: Male
  Weight: 81.6475 kg

DRUGS (4)
  1. MORPHINE [Suspect]
     Indication: PAIN
     Dosage: 30MG PO Q 6-8 HRS
     Route: 048
     Dates: start: 20040502, end: 20020602
  2. NORTRIPTYLINE HCL [Concomitant]
  3. CLONIDINE [Concomitant]
  4. OXAPROZIN [Concomitant]

REACTIONS (3)
  - HYPERHIDROSIS [None]
  - NAUSEA [None]
  - PHARMACEUTICAL PRODUCT COMPLAINT [None]
